FAERS Safety Report 25165940 (Version 1)
Quarter: 2025Q2

REPORT INFORMATION
  Report Type: Report from Study
  Country: US (occurrence: US)
  Receive Date: 20250407
  Receipt Date: 20250407
  Transmission Date: 20250716
  Serious: Yes (Hospitalization, Other)
  Sender: SANOFI AVENTIS
  Company Number: US-SA-2025SA095728

PATIENT
  Age: 70 Year
  Sex: Female

DRUGS (1)
  1. DUPILUMAB [Suspect]
     Active Substance: DUPILUMAB
     Indication: Asthma
     Route: 058
     Dates: start: 20250326, end: 20250326

REACTIONS (8)
  - Pain [Recovering/Resolving]
  - Lymphadenopathy [Recovering/Resolving]
  - Pulmonary mass [Unknown]
  - Gait disturbance [Recovering/Resolving]
  - Illness [Unknown]
  - Condition aggravated [Unknown]
  - Headache [Recovering/Resolving]
  - Arthralgia [Recovering/Resolving]

NARRATIVE: CASE EVENT DATE: 20250301
